FAERS Safety Report 9318419 (Version 1)
Quarter: 2013Q2

REPORT INFORMATION
  Report Type: Spontaneous
  Country: US (occurrence: US)
  Receive Date: 20130530
  Receipt Date: 20130530
  Transmission Date: 20140414
  Serious: No
  Sender: FDA-Public Use
  Company Number: US-GLAXOSMITHKLINE-A1013081A

PATIENT
  Sex: Male

DRUGS (5)
  1. VENTOLIN [Suspect]
     Indication: ASTHMA
     Route: 055
     Dates: start: 2003
  2. LISINOPRIL [Concomitant]
  3. FISH OIL [Concomitant]
  4. NEBULIZER [Concomitant]
  5. NIACIN [Concomitant]

REACTIONS (3)
  - Overdose [Unknown]
  - Therapeutic response decreased [Unknown]
  - Product quality issue [Unknown]
